FAERS Safety Report 19687195 (Version 1)
Quarter: 2021Q3

REPORT INFORMATION
  Report Type: Spontaneous
  Country: US (occurrence: US)
  Receive Date: 20210811
  Receipt Date: 20210811
  Transmission Date: 20211014
  Serious: No
  Sender: FDA-Public Use
  Company Number: US-PFIZER INC-2021889553

PATIENT
  Age: 65 Year
  Sex: Female

DRUGS (4)
  1. DEXLANSOPRAZOLE [Suspect]
     Active Substance: DEXLANSOPRAZOLE
     Dosage: UNK
  2. ELETRIPTAN HBR [Suspect]
     Active Substance: ELETRIPTAN HYDROBROMIDE
     Indication: MIGRAINE
     Dosage: UNK
  3. SUMATRIPTAN SUCCINATE. [Suspect]
     Active Substance: SUMATRIPTAN SUCCINATE
     Dosage: UNK
  4. LUBIPROSTONE [Suspect]
     Active Substance: LUBIPROSTONE
     Dosage: UNK

REACTIONS (4)
  - Vomiting [Unknown]
  - Malaise [Unknown]
  - Nausea [Unknown]
  - Retching [Unknown]
